FAERS Safety Report 18601765 (Version 4)
Quarter: 2021Q2

REPORT INFORMATION
  Report Type: Spontaneous
  Country: FR (occurrence: FR)
  Receive Date: 20201210
  Receipt Date: 20210625
  Transmission Date: 20210717
  Serious: Yes (Death, Other)
  Sender: FDA-Public Use
  Company Number: FR-MYLANLABS-2020M1100657

PATIENT
  Age: 37 Year
  Sex: Male
  Weight: 87 kg

DRUGS (11)
  1. OXAZEPAM. [Suspect]
     Active Substance: OXAZEPAM
     Indication: ALCOHOL DETOXIFICATION
     Dosage: 200 MILLIGRAM, QD
     Route: 048
     Dates: start: 2019, end: 20201102
  2. ZOPICLONE [Suspect]
     Active Substance: ZOPICLONE
     Indication: INSOMNIA
     Dosage: 7.5 MILLIGRAM, QD
     Route: 048
     Dates: start: 20201030, end: 20201102
  3. DIAZEPAM. [Suspect]
     Active Substance: DIAZEPAM
     Indication: ALCOHOL DETOXIFICATION
     Dosage: 1 DOSAGE FORM, PRN (AS NECESSARY)
     Route: 048
     Dates: start: 20201028, end: 20201102
  4. SERESTA [Suspect]
     Active Substance: OXAZEPAM
     Indication: ALCOHOL DETOXIFICATION
     Dosage: 200 MILLIGRAM, QD
     Route: 048
     Dates: start: 2019, end: 20201102
  5. GAVISCON                           /00237601/ [Suspect]
     Active Substance: ALUMINUM HYDROXIDE\MAGNESIUM CARBONATE
     Indication: GASTROOESOPHAGEAL REFLUX DISEASE
     Dosage: 3 DOSAGE FORM, QD
     Route: 048
     Dates: start: 2019, end: 20201102
  6. PRINCI B                           /01262901/ [Suspect]
     Active Substance: PYRIDOXINE\THIAMINE
     Dosage: 1 DOSAGE FORM
     Route: 048
     Dates: start: 20201027, end: 20201102
  7. SERTRALINE [Suspect]
     Active Substance: SERTRALINE HYDROCHLORIDE
     Indication: DEPRESSION
     Dosage: 100 MILLIGRAM, QD
     Route: 048
     Dates: start: 2019, end: 20201102
  8. MIANSERIN [Suspect]
     Active Substance: MIANSERIN
     Indication: DEPRESSION
     Dosage: 60 MILLIGRAM, QD
     Route: 048
     Dates: start: 2019, end: 20201102
  9. PRINCI B                           /01262901/ [Suspect]
     Active Substance: PYRIDOXINE\THIAMINE
     Indication: ALCOHOL DETOXIFICATION
     Dosage: 6 DOSAGE FORM, QD
     Route: 048
     Dates: start: 20201027, end: 20201102
  10. METHADONE [Suspect]
     Active Substance: METHADONE HYDROCHLORIDE
     Indication: DRUG DEPENDENCE
     Dosage: UNK
     Route: 048
     Dates: start: 2020, end: 20201102
  11. PANTOPRAZOLE [Suspect]
     Active Substance: PANTOPRAZOLE
     Indication: GASTROOESOPHAGEAL REFLUX DISEASE
     Dosage: 20 MILLIGRAM, QD
     Route: 048
     Dates: start: 20201028, end: 20201102

REACTIONS (3)
  - Cardio-respiratory arrest [Fatal]
  - Coma [Fatal]
  - Drug dependence [Unknown]

NARRATIVE: CASE EVENT DATE: 20201102
